FAERS Safety Report 6202059-8 (Version None)
Quarter: 2009Q2

REPORT INFORMATION
  Report Type: 
  Country: None (occurrence: None)
  Receive Date: 20090526
  Receipt Date: 20090514
  Transmission Date: 20091009
  Serious: Yes (Death, Hospitalization)
  Sender: FDA-Public Use
  Company Number: B0575176A

PATIENT
  Age: 49 Year
  Sex: Male

DRUGS (11)
  1. SEPTRIN [Suspect]
     Indication: DRUG USE FOR UNKNOWN INDICATION
     Route: 048
     Dates: start: 20080324, end: 20080401
  2. PREDNISONE [Suspect]
     Indication: DRUG USE FOR UNKNOWN INDICATION
     Dosage: 20MG PER DAY
     Route: 048
     Dates: start: 20080309, end: 20080410
  3. ACYCLOVIR SODIUM [Suspect]
     Indication: DRUG USE FOR UNKNOWN INDICATION
     Dosage: 800MG PER DAY
     Route: 048
     Dates: start: 20080309, end: 20080409
  4. OMEPRAZOL [Suspect]
     Indication: DRUG USE FOR UNKNOWN INDICATION
     Dosage: 20MG PER DAY
     Route: 048
     Dates: end: 20080409
  5. DIAZEPAM [Suspect]
     Indication: DRUG USE FOR UNKNOWN INDICATION
     Route: 048
     Dates: start: 20090318, end: 20090326
  6. CELLCEPT [Suspect]
     Indication: LIVER TRANSPLANT
     Dosage: 1500MG THREE TIMES PER DAY
     Dates: start: 20080309, end: 20080410
  7. INSULIN INSULATARD NPH NORDISK [Suspect]
     Indication: DRUG USE FOR UNKNOWN INDICATION
     Route: 065
     Dates: start: 20080325, end: 20080401
  8. INSULIN NOVO ACTRAPID [Suspect]
     Indication: DRUG USE FOR UNKNOWN INDICATION
     Route: 065
     Dates: start: 20080325, end: 20080401
  9. MYCOSTATIN [Suspect]
     Indication: DRUG USE FOR UNKNOWN INDICATION
     Route: 048
     Dates: start: 20080309, end: 20080410
  10. SANDIMMUNE [Suspect]
     Indication: DRUG USE FOR UNKNOWN INDICATION
     Dosage: 600MG PER DAY
     Route: 048
     Dates: start: 20080309, end: 20080411
  11. SEGURIL [Suspect]
     Indication: DRUG USE FOR UNKNOWN INDICATION
     Route: 048
     Dates: start: 20080328

REACTIONS (1)
  - TOXIC EPIDERMAL NECROLYSIS [None]
